FAERS Safety Report 13562057 (Version 2)
Quarter: 2017Q2

REPORT INFORMATION
  Report Type: Spontaneous
  Country: US (occurrence: US)
  Receive Date: 20170519
  Receipt Date: 20170613
  Transmission Date: 20170830
  Serious: No
  Sender: FDA-Public Use
  Company Number: US-ASTRAZENECA-2017SE52833

PATIENT
  Sex: Female

DRUGS (1)
  1. NEXIUM 24HR [Suspect]
     Active Substance: ESOMEPRAZOLE MAGNESIUM
     Dosage: 40MG A DAY 2 PILLS IN THE MORNING
     Route: 048

REACTIONS (4)
  - Product use issue [Unknown]
  - Urticaria [Unknown]
  - Drug hypersensitivity [Unknown]
  - Weight increased [Unknown]
